FAERS Safety Report 6574495-1 (Version None)
Quarter: 2010Q1

REPORT INFORMATION
  Report Type: 
  Country: None (occurrence: None)
  Receive Date: 20100209
  Receipt Date: 20091023
  Transmission Date: 20100710
  Serious: No
  Sender: FDA-Public Use
  Company Number: A0809958A

PATIENT
  Sex: Female

DRUGS (13)
  1. PAXIL [Suspect]
     Indication: DEPRESSION
     Dosage: 5MG PER DAY
     Route: 048
     Dates: start: 20090921
  2. PAXIL [Suspect]
     Dosage: 10MG TWICE PER DAY
     Route: 048
     Dates: start: 20091020, end: 20091020
  3. PAXIL CR [Suspect]
     Indication: DEPRESSION
     Dosage: 12.5MG PER DAY
     Route: 048
     Dates: start: 20091012
  4. COUMADIN [Concomitant]
  5. CATAPRES [Concomitant]
  6. METOPROLOL TARTRATE [Concomitant]
  7. AVAPRO [Concomitant]
  8. NORVASC [Concomitant]
  9. ACTOS [Concomitant]
  10. JANUVIA [Concomitant]
  11. GLIMEPIRIDE [Concomitant]
  12. BUSPAR [Concomitant]
  13. XANAX [Concomitant]

REACTIONS (10)
  - DECREASED APPETITE [None]
  - DIZZINESS [None]
  - DRUG INEFFECTIVE [None]
  - DRY MOUTH [None]
  - HEADACHE [None]
  - HYPERTENSION [None]
  - MALAISE [None]
  - NERVOUSNESS [None]
  - PALPITATIONS [None]
  - TENSION [None]
